FAERS Safety Report 8144864-7 (Version None)
Quarter: 2012Q1

REPORT INFORMATION
  Report Type: 
  Country: None (occurrence: None)
  Receive Date: 20120217
  Receipt Date: 20120214
  Transmission Date: 20120608
  Serious: Yes (Death)
  Sender: FDA-Public Use
  Company Number: US-GLAXOSMITHKLINE-A0965881A

PATIENT
  Age: 56 Year
  Sex: Female

DRUGS (3)
  1. NOVOLOG [Concomitant]
  2. COREG [Suspect]
     Indication: PRODUCT USED FOR UNKNOWN INDICATION
     Dosage: 6.25MG TWICE PER DAY
     Route: 048
     Dates: end: 20120208
  3. LANTUS [Concomitant]

REACTIONS (1)
  - DEATH [None]
